FAERS Safety Report 16278303 (Version 1)
Quarter: 2019Q2

REPORT INFORMATION
  Report Type: Other
  Country: US (occurrence: US)
  Receive Date: 20190506
  Receipt Date: 20190506
  Transmission Date: 20190711
  Serious: No
  Sender: FDA-Public Use
  Company Number: US-AMNEAL PHARMACEUTICALS-2019AMN00420

PATIENT
  Sex: Male
  Weight: 52.15 kg

DRUGS (1)
  1. METHYLPHENIDATE HYDROCHLORIDE. [Suspect]
     Active Substance: METHYLPHENIDATE HYDROCHLORIDE
     Indication: ATTENTION DEFICIT/HYPERACTIVITY DISORDER
     Dosage: 36 MG, 1X/DAY
     Route: 048

REACTIONS (3)
  - Fatigue [Recovered/Resolved]
  - Drug ineffective [Recovered/Resolved]
  - Product substitution issue [Recovered/Resolved]
